FAERS Safety Report 11856107 (Version 4)
Quarter: 2016Q1

REPORT INFORMATION
  Report Type: Report from Study
  Country: US (occurrence: US)
  Receive Date: 20151221
  Receipt Date: 20160122
  Transmission Date: 20160526
  Serious: Yes (Hospitalization, Other)
  Sender: FDA-Public Use
  Company Number: US-BAYER-2015-487735

PATIENT
  Age: 58 Year
  Sex: Male
  Weight: 93.88 kg

DRUGS (4)
  1. NEXAVAR [Suspect]
     Active Substance: SORAFENIB
     Indication: HEPATIC CANCER
     Dosage: 200 MG, BID
     Route: 048
  2. NEXAVAR [Suspect]
     Active Substance: SORAFENIB
     Indication: HEPATIC CANCER
     Dosage: 400 MG, BID
     Route: 048
     Dates: start: 20151201, end: 20151209
  3. NEXAVAR [Suspect]
     Active Substance: SORAFENIB
     Indication: HEPATIC CANCER
     Dosage: 400 MG, BID
     Route: 048
     Dates: start: 201512
  4. NEXAVAR [Suspect]
     Active Substance: SORAFENIB
     Indication: HEPATIC CANCER
     Dosage: 400MG EVERY 12 HOURS
     Route: 048
     Dates: start: 201512, end: 20151215

REACTIONS (17)
  - Mobility decreased [Not Recovered/Not Resolved]
  - Fluid intake reduced [Unknown]
  - Contusion [Not Recovered/Not Resolved]
  - Weight decreased [Unknown]
  - Abdominal discomfort [Unknown]
  - Blister [Unknown]
  - Decreased appetite [Not Recovered/Not Resolved]
  - Hepatic enzyme increased [Unknown]
  - Feeding disorder [Unknown]
  - Flatulence [Unknown]
  - Abdominal pain upper [Unknown]
  - Chest pain [Not Recovered/Not Resolved]
  - Chest pain [Unknown]
  - Pain in extremity [Not Recovered/Not Resolved]
  - Constipation [Unknown]
  - Contusion [Unknown]
  - Nausea [Not Recovered/Not Resolved]

NARRATIVE: CASE EVENT DATE: 20151201
